FAERS Safety Report 10261409 (Version 2)
Quarter: 2014Q2

REPORT INFORMATION
  Report Type: Spontaneous
  Country: US (occurrence: US)
  Receive Date: 20140626
  Receipt Date: 20140626
  Transmission Date: 20141212
  Serious: Yes (Hospitalization)
  Sender: FDA-Public Use
  Company Number: 2014SP001251

PATIENT
  Age: 61 Year
  Sex: Male
  Weight: 90 kg

DRUGS (8)
  1. LATUDA [Suspect]
     Indication: BIPOLAR I DISORDER
     Route: 048
     Dates: start: 20140419, end: 20140506
  2. LATUDA [Suspect]
     Indication: BIPOLAR I DISORDER
     Route: 048
     Dates: start: 201402, end: 201405
  3. LATUDA [Suspect]
     Indication: BIPOLAR I DISORDER
     Route: 048
     Dates: start: 201401, end: 201401
  4. LATUDA [Suspect]
     Indication: BIPOLAR I DISORDER
     Route: 048
     Dates: start: 2013, end: 201401
  5. LATUDA [Suspect]
     Indication: BIPOLAR I DISORDER
     Route: 048
     Dates: start: 2013
  6. TRAZODONE [Concomitant]
     Indication: INSOMNIA
     Route: 048
  7. WELLBUTRIN [Concomitant]
     Route: 048
  8. DEPAKOTE [Concomitant]
     Route: 048

REACTIONS (11)
  - Abasia [Not Recovered/Not Resolved]
  - Depression [Not Recovered/Not Resolved]
  - Muscular weakness [Not Recovered/Not Resolved]
  - Gait disturbance [Not Recovered/Not Resolved]
  - Immobile [Recovered/Resolved]
  - Fall [Unknown]
  - Face injury [Unknown]
  - Contusion [Unknown]
  - Laceration [Unknown]
  - Limb discomfort [Not Recovered/Not Resolved]
  - Parkinsonism [Not Recovered/Not Resolved]
